FAERS Safety Report 18729461 (Version 1)
Quarter: 2021Q1

REPORT INFORMATION
  Report Type: Spontaneous
  Country: FR (occurrence: FR)
  Receive Date: 20210112
  Receipt Date: 20210112
  Transmission Date: 20210419
  Serious: Yes (Other)
  Sender: FDA-Public Use
  Company Number: FR-ROCHE-2747443

PATIENT
  Age: 68 Year
  Sex: Female

DRUGS (1)
  1. LUCENTIS [Suspect]
     Active Substance: RANIBIZUMAB
     Indication: AGE-RELATED MACULAR DEGENERATION
     Dosage: 1 DF, CYCLIC  (3 INJECTIONS)
     Route: 031
     Dates: start: 20200616, end: 20201013

REACTIONS (1)
  - Eye haemorrhage [Recovered/Resolved]

NARRATIVE: CASE EVENT DATE: 20201013
